FAERS Safety Report 24573463 (Version 2)
Quarter: 2024Q4

REPORT INFORMATION
  Report Type: Report from Study
  Country: MX (occurrence: MX)
  Receive Date: 20241102
  Receipt Date: 20241121
  Transmission Date: 20250114
  Serious: Yes (Other)
  Sender: NOVARTIS
  Company Number: MX-002147023-NVSC2024MX211499

PATIENT
  Age: 75 Year
  Sex: Female
  Weight: 66 kg

DRUGS (9)
  1. KISQALI [Suspect]
     Active Substance: RIBOCICLIB
     Indication: Breast cancer
     Dosage: 600 MG, QD
     Route: 048
     Dates: start: 2022
  2. KISQALI [Suspect]
     Active Substance: RIBOCICLIB
     Dosage: 3 DOSAGE FORM (3 (200 MG)), QD
     Route: 048
     Dates: start: 202301
  3. ARIMIDEX [Concomitant]
     Active Substance: ANASTROZOLE
     Indication: Breast cancer
     Dosage: 1 DOSAGE FORM, QD
     Route: 065
     Dates: start: 202301
  4. NEBIVOLOL [Concomitant]
     Active Substance: NEBIVOLOL
     Indication: Hypertension
     Dosage: 1 DOSAGE FORM, QD, 8 YEARS AGO
     Route: 048
  5. FLORINEF ACETATE [Concomitant]
     Active Substance: FLUDROCORTISONE ACETATE
     Indication: Prophylaxis
     Dosage: 1 DOSAGE FORM, QD, 8 YEARS AGO
     Route: 048
  6. RIVAROXABAN [Concomitant]
     Active Substance: RIVAROXABAN
     Indication: Anticoagulant therapy
     Dosage: 1 DOSAGE FORM, QD
     Route: 048
     Dates: start: 2016
  7. TRAMADOL [Concomitant]
     Active Substance: TRAMADOL
     Indication: Fibromyalgia
     Dosage: 1 DOSAGE FORM, QD
     Route: 048
  8. MIRABEGRON [Concomitant]
     Active Substance: MIRABEGRON
     Indication: Hypertonic bladder
     Dosage: 0.5 DOSAGE FORM, QD
     Route: 048
     Dates: start: 202401
  9. FULVESTRANT [Concomitant]
     Active Substance: FULVESTRANT
     Indication: Breast cancer
     Dosage: 2 APPLICATIONS (250 MG) (INJECTABLE SOLUTION), QMO
     Route: 030
     Dates: start: 202301, end: 2023

REACTIONS (10)
  - Cataract [Unknown]
  - Eyelid irritation [Not Recovered/Not Resolved]
  - Fall [Recovered/Resolved]
  - Limb injury [Unknown]
  - Contusion [Unknown]
  - Face injury [Recovered/Resolved]
  - Helicobacter infection [Unknown]
  - Joint injury [Recovered/Resolved]
  - Spinal column injury [Recovered/Resolved]
  - Fall [Recovered/Resolved]

NARRATIVE: CASE EVENT DATE: 20231201
